FAERS Safety Report 7790905-6 (Version None)
Quarter: 2011Q3

REPORT INFORMATION
  Report Type: 
  Country: None (occurrence: None)
  Receive Date: 20110930
  Receipt Date: 20110920
  Transmission Date: 20111222
  Serious: Yes (Other)
  Sender: FDA-Public Use
  Company Number: BE-BAYER-2011-088669

PATIENT
  Age: 36 Year
  Sex: Female

DRUGS (1)
  1. MIRENA [Suspect]
     Indication: CONTRACEPTION
     Dosage: UNK
     Dates: start: 20110908, end: 20110914

REACTIONS (4)
  - DEVICE DISLOCATION [None]
  - PROCEDURAL PAIN [None]
  - UTERINE PERFORATION [None]
  - SMALL INTESTINAL RESECTION [None]
